FAERS Safety Report 25898346 (Version 4)
Quarter: 2025Q4

REPORT INFORMATION
  Report Type: Report from Study
  Country: EU (occurrence: EU)
  Receive Date: 20251008
  Receipt Date: 20251118
  Transmission Date: 20260119
  Serious: Yes (Hospitalization, Other)
  Sender: ABBVIE
  Company Number: EU-ABBVIE-6493198

PATIENT
  Age: 74 Year
  Sex: Male

DRUGS (2)
  1. CARBIDOPA\LEVODOPA [Suspect]
     Active Substance: CARBIDOPA\LEVODOPA
     Indication: Parkinson^s disease
     Dosage: 16-HOUR THERAPY: MD: 5.0 ML, CRT: 3.0 ML/H, ED: 1.0 ML
     Route: 050
     Dates: start: 20250924
  2. CARBIDOPA\LEVODOPA [Suspect]
     Active Substance: CARBIDOPA\LEVODOPA

REACTIONS (4)
  - Urinary tract infection [Not Recovered/Not Resolved]
  - General physical health deterioration [Unknown]
  - Sepsis [Unknown]
  - Musculoskeletal stiffness [Unknown]

NARRATIVE: CASE EVENT DATE: 20250101
